FAERS Safety Report 10989354 (Version 1)
Quarter: 2015Q2

REPORT INFORMATION
  Report Type: Spontaneous
  Country: US (occurrence: US)
  Receive Date: 20150406
  Receipt Date: 20150406
  Transmission Date: 20150821
  Serious: No
  Sender: FDA-Public Use
  Company Number: US-PFIZER INC-2015112972

PATIENT
  Sex: Female
  Weight: 38 kg

DRUGS (1)
  1. CHANTIX [Suspect]
     Active Substance: VARENICLINE TARTRATE
     Indication: SMOKING CESSATION THERAPY
     Dosage: UNK, 3X/DAY (1/2 THE DOSE 3 TIMES A DAY )

REACTIONS (2)
  - Nausea [Unknown]
  - Food craving [Unknown]
